FAERS Safety Report 9619693 (Version 1)
Quarter: 2013Q4

REPORT INFORMATION
  Report Type: Spontaneous
  Country: ES (occurrence: ES)
  Receive Date: 20131014
  Receipt Date: 20131014
  Transmission Date: 20140711
  Serious: Yes (Other)
  Sender: FDA-Public Use
  Company Number: ALCN2013ES005118

PATIENT
  Age: 33 Year
  Sex: Female

DRUGS (1)
  1. CYCLOPENTOLATE HCL [Suspect]
     Indication: OPHTHALMOLOGICAL EXAMINATION
     Dosage: UNK UNK, ONCE/SINGLE
     Route: 047
     Dates: start: 2013

REACTIONS (7)
  - Expired drug administered [Unknown]
  - Pharyngeal oedema [Recovered/Resolved]
  - Muscular weakness [Recovered/Resolved]
  - Dizziness [Recovered/Resolved]
  - Genital burning sensation [Recovered/Resolved]
  - Drug effect prolonged [Recovered/Resolved]
  - Eye irritation [Recovered/Resolved]
